FAERS Safety Report 4928204-X (Version None)
Quarter: 2006Q1

REPORT INFORMATION
  Report Type: 
  Country: None (occurrence: None)
  Receive Date: 20060223
  Receipt Date: 20060213
  Transmission Date: 20060701
  Serious: Yes (Hospitalization)
  Sender: FDA-Public Use
  Company Number: 222146

PATIENT
  Age: 72 Year
  Sex: Female

DRUGS (5)
  1. MABTHERA (RITUXIMAB) CONC FOR SOLUTION FOR INFUSION [Suspect]
     Dosage: SINGLE
     Dates: start: 20040517, end: 20040517
  2. CYCLOPHOSPHAMIDE [Suspect]
     Dosage: SINGLE
     Dates: start: 20040517, end: 20040517
  3. VINCRISTINE [Suspect]
     Dates: start: 20040517, end: 20040517
  4. PEGFILGRASTIM (PEGFILGRASTIM) [Suspect]
     Dosage: 6 MG, SINGLE
     Dates: start: 20040518, end: 20040518
  5. PREDNISONE TAB [Suspect]
     Dosage: ORAL
     Route: 048
     Dates: start: 20040517, end: 20040517

REACTIONS (3)
  - AGRANULOCYTOSIS [None]
  - SEPTIC SHOCK [None]
  - WHITE BLOOD CELL COUNT DECREASED [None]
